FAERS Safety Report 6064953-0 (Version None)
Quarter: 2009Q1

REPORT INFORMATION
  Report Type: 
  Country: None (occurrence: None)
  Receive Date: 20090204
  Receipt Date: 20090120
  Transmission Date: 20090719
  Serious: Yes (Other)
  Sender: FDA-Public Use
  Company Number: US-AVENTIS-200910511US

PATIENT
  Age: 73 Year
  Sex: Female

DRUGS (5)
  1. ARAVA [Suspect]
     Route: 048
     Dates: start: 20080401, end: 20080401
  2. ARAVA [Suspect]
     Route: 048
     Dates: start: 20080401, end: 20081101
  3. ARAVA [Suspect]
     Route: 048
     Dates: start: 20081101
  4. METHOTREXATE [Suspect]
     Dosage: DOSE: UNK
     Dates: start: 20080101, end: 20080401
  5. METHOTREXATE [Suspect]
     Dosage: DOSE: UNK
     Dates: start: 20081001, end: 20081001

REACTIONS (2)
  - BLADDER CANCER [None]
  - NODULE [None]
